FAERS Safety Report 24798596 (Version 1)
Quarter: 2025Q1

REPORT INFORMATION
  Report Type: Spontaneous
  Country: JP (occurrence: JP)
  Receive Date: 20250102
  Receipt Date: 20250102
  Transmission Date: 20250409
  Serious: Yes (Other)
  Sender: ALKEM
  Company Number: JP-ALKEM LABORATORIES LIMITED-JP-ALKEM-2024-04106

PATIENT
  Age: 60 Year
  Sex: Female
  Weight: 52 kg

DRUGS (8)
  1. TACROLIMUS [Suspect]
     Active Substance: TACROLIMUS
     Indication: Immunosuppressant drug therapy
     Route: 065
  2. TACROLIMUS [Suspect]
     Active Substance: TACROLIMUS
     Route: 065
  3. TACROLIMUS [Suspect]
     Active Substance: TACROLIMUS
     Route: 065
  4. MYCOPHENOLATE MOFETIL [Concomitant]
     Active Substance: MYCOPHENOLATE MOFETIL
     Indication: Immunosuppressant drug therapy
     Route: 065
  5. BASILIXIMAB [Concomitant]
     Active Substance: BASILIXIMAB
     Indication: Immunosuppressant drug therapy
     Route: 065
  6. PREDNISOLONE [Concomitant]
     Active Substance: PREDNISOLONE
     Indication: Immunosuppressant drug therapy
     Route: 065
  7. RITUXIMAB [Concomitant]
     Active Substance: RITUXIMAB
     Indication: Immunosuppressant drug therapy
     Route: 065
  8. Intravenous immune serum globulin [Concomitant]
     Indication: Immunosuppressant drug therapy
     Route: 042

REACTIONS (3)
  - Cerebral infarction [Recovered/Resolved]
  - Neurotoxicity [Recovered/Resolved]
  - Posterior reversible encephalopathy syndrome [Recovered/Resolved]
